FAERS Safety Report 14756238 (Version 1)
Quarter: 2018Q2

REPORT INFORMATION
  Report Type: Spontaneous
  Country: US (occurrence: US)
  Receive Date: 20180413
  Receipt Date: 20180413
  Transmission Date: 20180711
  Serious: No
  Sender: FDA-Public Use
  Company Number: US-BION-006081

PATIENT
  Age: 59 Year
  Sex: Female
  Weight: 84 kg

DRUGS (2)
  1. LASIX [Concomitant]
     Active Substance: FUROSEMIDE
  2. ALEVE [Suspect]
     Active Substance: NAPROXEN SODIUM
     Indication: PAIN
     Dosage: 4 IN 24 HOURS
     Route: 048

REACTIONS (1)
  - Incorrect dose administered [Not Recovered/Not Resolved]
